FAERS Safety Report 14360713 (Version 2)
Quarter: 2018Q4

REPORT INFORMATION
  Report Type: Spontaneous
  Country: ES (occurrence: ES)
  Receive Date: 20180106
  Receipt Date: 20181228
  Transmission Date: 20190204
  Serious: Yes (Hospitalization)
  Sender: FDA-Public Use
  Company Number: ES-MYLANLABS-2018M1001422

PATIENT
  Age: 67 Year
  Sex: Male

DRUGS (8)
  1. LEVOFLOXACIN. [Suspect]
     Active Substance: LEVOFLOXACIN
     Indication: RESPIRATORY TRACT INFECTION
     Dosage: 500 MILLIGRAM, QD (500 MG, QD)
     Route: 048
     Dates: start: 20170124, end: 20170202
  2. AMOXICILLIN/CLAVULANIC ACID [Suspect]
     Active Substance: AMOXICILLIN\CLAVULANIC ACID
     Indication: RESPIRATORY TRACT INFECTION
     Dosage: 1 DOSAGE FORM, TID (1.1.1)
     Route: 048
     Dates: start: 20170117, end: 20170123
  3. HIDROFEROL [Concomitant]
     Active Substance: CALCIFEDIOL
     Indication: OSTEOPOROSIS
     Dosage: UNK (1 AMP, 266)
     Route: 048
     Dates: start: 20160527
  4. AZITHROMYCIN ANHYDROUS. [Suspect]
     Active Substance: AZITHROMYCIN ANHYDROUS
     Indication: RESPIRATORY TRACT INFECTION
     Dosage: 500 MILLIGRAM, QD (1 CP)
     Route: 048
     Dates: start: 20170102, end: 20170106
  5. VALSARTAN/HCT 1A PHARMA [Concomitant]
     Dosage: 1-0-0 32/12.5
     Route: 048
  6. VALSARTAN/HCT 1A PHARMA [Concomitant]
     Dosage: UNK UNK, QD (1-0-0)
     Route: 048
     Dates: start: 20141209
  7. TAMSULOSINA [Concomitant]
     Active Substance: TAMSULOSIN HYDROCHLORIDE
     Indication: BENIGN PROSTATIC HYPERPLASIA
     Dosage: UNK (1 CP)
     Route: 048
     Dates: start: 20160527
  8. ALOPURINOL [Suspect]
     Active Substance: ALLOPURINOL
     Indication: HYPERURICAEMIA
     Dosage: 300 MILLIGRAM, QD (1 CP)
     Route: 048
     Dates: start: 20160527, end: 20170215

REACTIONS (2)
  - Eosinophilia [Recovering/Resolving]
  - Eosinophilic pleural effusion [Recovered/Resolved]

NARRATIVE: CASE EVENT DATE: 20170221
